FAERS Safety Report 18746153 (Version 4)
Quarter: 2021Q3

REPORT INFORMATION
  Report Type: Spontaneous
  Country: US (occurrence: US)
  Receive Date: 20210115
  Receipt Date: 20210721
  Transmission Date: 20211014
  Serious: Yes (Other)
  Sender: FDA-Public Use
  Company Number: US-PFIZER INC-2021018423

PATIENT
  Age: 29 Year
  Sex: Male

DRUGS (3)
  1. XELJANZ [Suspect]
     Active Substance: TOFACITINIB CITRATE
     Dosage: 5 MG, 2X/DAY
     Route: 048
     Dates: start: 202012
  2. XELJANZ [Suspect]
     Active Substance: TOFACITINIB CITRATE
     Dosage: 10 MG, 2X/DAY
     Route: 048
  3. XELJANZ [Suspect]
     Active Substance: TOFACITINIB CITRATE
     Indication: COLITIS ULCERATIVE
     Dosage: 10 MG, 2X/DAY
     Route: 048
     Dates: start: 202010, end: 2020

REACTIONS (9)
  - Exposure to SARS-CoV-2 [Unknown]
  - Diarrhoea [Not Recovered/Not Resolved]
  - Drug ineffective [Unknown]
  - Gastrointestinal haemorrhage [Not Recovered/Not Resolved]
  - Ageusia [Unknown]
  - Respiratory tract congestion [Recovering/Resolving]
  - Colitis ulcerative [Unknown]
  - COVID-19 [Unknown]
  - Anosmia [Unknown]

NARRATIVE: CASE EVENT DATE: 2020
